FAERS Safety Report 21180157 (Version 1)
Quarter: 2022Q3

REPORT INFORMATION
  Report Type: Spontaneous
  Country: FR (occurrence: FR)
  Receive Date: 20220806
  Receipt Date: 20220806
  Transmission Date: 20221027
  Serious: Yes (Hospitalization)
  Sender: FDA-Public Use
  Company Number: None

PATIENT
  Age: 75 Year
  Sex: Male
  Weight: 69 kg

DRUGS (17)
  1. CARBOPLATIN [Suspect]
     Active Substance: CARBOPLATIN
     Indication: Small cell lung cancer metastatic
     Dosage: STRENGTH: 10 MG/ML
     Dates: start: 20220615, end: 20220615
  2. DURVALUMAB [Suspect]
     Active Substance: DURVALUMAB
     Indication: Small cell lung cancer metastatic
     Dosage: STRENGTH: 50 MG/ML, INTRAVENOUS INFUSION
     Dates: start: 20220615, end: 20220615
  3. ETOPOPHOS [Suspect]
     Active Substance: ETOPOSIDE PHOSPHATE
     Indication: Small cell lung cancer metastatic
     Dosage: STRENGTH: 100 MG, LYOPHILISATE FOR PARENTERAL USE
     Dates: start: 20220615, end: 20220615
  4. GAVISCON [Concomitant]
     Active Substance: ALUMINUM HYDROXIDE\MAGNESIUM CARBONATE
  5. METFORMIN [Concomitant]
     Active Substance: METFORMIN HYDROCHLORIDE
  6. AMLODIPINE [Concomitant]
     Active Substance: AMLODIPINE BESYLATE
     Dosage: STRENGTH: 5 MG
  7. LANSOPRAZOLE [Concomitant]
     Active Substance: LANSOPRAZOLE
     Dosage: STRENGTH:  30 MG
  8. PHLOROGLUCINOL [Concomitant]
     Active Substance: PHLOROGLUCINOL
  9. ALFUZOSIN [Concomitant]
     Active Substance: ALFUZOSIN
     Dosage: STRENGTH: 10 MG, LP
  10. FINASTERIDE [Concomitant]
     Active Substance: FINASTERIDE
     Dosage: STRENGTH: 5MG
  11. INSULIN GLARGINE [Concomitant]
     Active Substance: INSULIN GLARGINE
  12. DOLIPRANE [Concomitant]
     Active Substance: ACETAMINOPHEN
  13. HUMALOG [Concomitant]
     Active Substance: INSULIN LISPRO
  14. KARDEGIC [Concomitant]
     Active Substance: ASPIRIN DL-LYSINE
     Dosage: STRENGTH: 75 MG,  POWDER FOR ORAL SOLUTION IN SACHET-DOSE
  15. VILDAGLIPTIN [Concomitant]
     Active Substance: VILDAGLIPTIN
     Dosage: STRENGTH: 50 MG
  16. ZOPICLONE [Concomitant]
     Active Substance: ZOPICLONE
  17. ATORVASTATIN [Concomitant]
     Active Substance: ATORVASTATIN
     Dosage: STRENGTH; 10 MG

REACTIONS (3)
  - Hyperleukocytosis [Recovering/Resolving]
  - Thrombocytosis [Recovered/Resolved]
  - Neutrophil count increased [Recovering/Resolving]

NARRATIVE: CASE EVENT DATE: 20220621
